FAERS Safety Report 9292417 (Version 1)
Quarter: 2013Q2

REPORT INFORMATION
  Report Type: Spontaneous
  Country: FR (occurrence: FR)
  Receive Date: 20130516
  Receipt Date: 20130516
  Transmission Date: 20140414
  Serious: Yes (Other)
  Sender: FDA-Public Use
  Company Number: FR-PERRIGO-13FR005080

PATIENT
  Age: 77 Year
  Sex: Female
  Weight: 77 kg

DRUGS (7)
  1. COLISTIMETHATE SODIUM RX 150 MG/VIAL 7N5 [Suspect]
     Indication: PSEUDOMONAS INFECTION
     Dosage: 9 MILLION UNITS, DAILY
     Route: 065
  2. COLISTIMETHATE SODIUM RX 150 MG/VIAL 7N5 [Suspect]
     Dosage: 12 MILLION UNITS, SINGLE
  3. COLISTIMETHATE SODIUM RX 150 MG/VIAL 7N5 [Suspect]
     Dosage: 9 MILLION UNITS, DAILY
     Route: 065
  4. DORIPENEM [Concomitant]
     Indication: PSEUDOMONAS INFECTION
     Route: 042
  5. AZTREONAM [Concomitant]
     Indication: PSEUDOMONAS INFECTION
     Route: 042
  6. FOSFOMYCIN [Concomitant]
     Indication: PSEUDOMONAS INFECTION
     Route: 048
  7. RIFAMPICIN [Concomitant]
     Indication: PSEUDOMONAS INFECTION
     Route: 065

REACTIONS (5)
  - Neurotoxicity [Recovered/Resolved]
  - Vertigo [Recovered/Resolved]
  - Confusional state [Recovered/Resolved]
  - Bradypnoea [Recovered/Resolved]
  - Hypercapnia [Recovered/Resolved]
